FAERS Safety Report 25815557 (Version 1)
Quarter: 2025Q3

REPORT INFORMATION
  Report Type: Report from Study
  Country: US (occurrence: US)
  Receive Date: 20250918
  Receipt Date: 20250918
  Transmission Date: 20251021
  Serious: Yes (Hospitalization, Other)
  Sender: ALEXION PHARMACEUTICALS
  Company Number: A202312404

PATIENT
  Age: 72 Year
  Sex: Female

DRUGS (1)
  1. STRENSIQ [Suspect]
     Active Substance: ASFOTASE ALFA
     Indication: Phosphorus metabolism disorder
     Dosage: 114 MILLIGRAM, TIW
     Route: 065

REACTIONS (3)
  - Heart rate irregular [Unknown]
  - Blood iron decreased [Unknown]
  - Blood test abnormal [Unknown]
